FAERS Safety Report 6332655-9 (Version None)
Quarter: 2009Q3

REPORT INFORMATION
  Report Type: 
  Country: None (occurrence: None)
  Receive Date: 20090828
  Receipt Date: 20090819
  Transmission Date: 20100115
  Serious: Yes (Hospitalization, Other)
  Sender: FDA-Public Use
  Company Number: JP-NOVOPROD-289847

PATIENT
  Age: 56 Year
  Sex: Female
  Weight: 79 kg

DRUGS (11)
  1. NOVOLIN R [Suspect]
     Indication: DIABETES MELLITUS
     Dosage: 60 U, QD
     Dates: start: 20070824, end: 20070902
  2. NOVOLIN N [Suspect]
     Indication: DIABETES MELLITUS
     Dosage: 20+0+16
     Route: 058
     Dates: start: 20070829, end: 20070926
  3. HEPARIN SODIUM [Concomitant]
     Dosage: 12000 U, UNK
     Route: 042
     Dates: start: 20070826, end: 20070903
  4. OMEPRAL                            /00661201/ [Concomitant]
     Dosage: 2 UNK, UNK
     Route: 042
     Dates: start: 20070826, end: 20070829
  5. SUPELZON [Concomitant]
     Dosage: 2 UNK, UNK
     Dates: start: 20070825, end: 20070829
  6. KAKODIN [Concomitant]
     Route: 042
     Dates: start: 20070826, end: 20070831
  7. REMINARON [Concomitant]
     Dosage: 2000 MG, UNK
     Dates: start: 20070904, end: 20070915
  8. FRANDOL [Concomitant]
     Dates: start: 20070902, end: 20070916
  9. RAINCLUT ISEI [Concomitant]
     Dosage: 15000 U, UNK
     Route: 042
     Dates: start: 20070904, end: 20070912
  10. MEYLON [Concomitant]
     Route: 042
     Dates: start: 20070906, end: 20070919
  11. NICARPINE [Concomitant]
     Dosage: 2 MG/H
     Route: 042

REACTIONS (6)
  - MOVEMENT DISORDER [None]
  - NAUSEA [None]
  - NYSTAGMUS [None]
  - PAIN IN EXTREMITY [None]
  - VOMITING [None]
  - WERNICKE'S ENCEPHALOPATHY [None]
